FAERS Safety Report 17780700 (Version 1)
Quarter: 2020Q2

REPORT INFORMATION
  Report Type: Spontaneous
  Country: US (occurrence: US)
  Receive Date: 20200513
  Receipt Date: 20200513
  Transmission Date: 20200714
  Serious: Yes (Hospitalization)
  Sender: FDA-Public Use
  Company Number: None

PATIENT
  Age: 81 Year
  Sex: Male
  Weight: 76 kg

DRUGS (2)
  1. WARFARIN (WARFARIN NA (EXELAN) 10MG TAB) [Suspect]
     Active Substance: WARFARIN SODIUM
     Indication: ATRIAL FIBRILLATION
     Dates: start: 20050228, end: 20200318
  2. ASPIRIN (ASPIRIN 81MG TAB, CHEWABLE) [Suspect]
     Active Substance: ASPIRIN
     Indication: CEREBROVASCULAR ACCIDENT
     Route: 048
     Dates: start: 20050301, end: 20200318

REACTIONS (2)
  - Melaena [None]
  - Epistaxis [None]

NARRATIVE: CASE EVENT DATE: 20200318
